FAERS Safety Report 25230310 (Version 1)
Quarter: 2025Q2

REPORT INFORMATION
  Report Type: Spontaneous
  Country: US (occurrence: US)
  Receive Date: 20250423
  Receipt Date: 20250423
  Transmission Date: 20250717
  Serious: Yes (Death)
  Sender: AMGEN
  Company Number: US-AMGEN-USASP2025076316

PATIENT

DRUGS (3)
  1. TRASTUZUMAB [Suspect]
     Active Substance: TRASTUZUMAB
     Indication: HER2 positive breast cancer
     Route: 065
  2. DOCETAXEL [Concomitant]
     Active Substance: DOCETAXEL
     Indication: HER2 positive breast cancer
     Route: 065
  3. PERTUZUMAB [Concomitant]
     Active Substance: PERTUZUMAB
     Indication: HER2 positive breast cancer
     Route: 065

REACTIONS (2)
  - Death [Fatal]
  - Off label use [Unknown]
